FAERS Safety Report 7236622-2 (Version None)
Quarter: 2011Q1

REPORT INFORMATION
  Report Type: 
  Country: None (occurrence: None)
  Receive Date: 20110120
  Receipt Date: 20110118
  Transmission Date: 20110831
  Serious: Yes (Hospitalization, Other)
  Sender: FDA-Public Use
  Company Number: US-ELI_LILLY_AND_COMPANY-US201101004269

PATIENT
  Age: 80 Year
  Sex: Male

DRUGS (10)
  1. THYROXIN [Concomitant]
     Indication: THYROID DISORDER
  2. ANTIHYPERTENSIVES [Concomitant]
  3. HYDRALAZINE [Concomitant]
  4. KEPPRA [Concomitant]
  5. CHOLINE [Concomitant]
  6. NORVASC [Concomitant]
  7. CRESTOR [Concomitant]
  8. ARICEPT [Concomitant]
  9. LANTUS [Concomitant]
     Dosage: 15 U, EACH EVENING
  10. HUMALOG [Suspect]
     Indication: DIABETES MELLITUS
     Dosage: UNK, AS NEEDED
     Dates: start: 19910101

REACTIONS (5)
  - DRUG DISPENSING ERROR [None]
  - RENAL FAILURE CHRONIC [None]
  - CONVULSION [None]
  - BLOOD GLUCOSE INCREASED [None]
  - PELVIC FRACTURE [None]
